FAERS Safety Report 4919344-X (Version None)
Quarter: 2006Q1

REPORT INFORMATION
  Report Type: 
  Country: None (occurrence: None)
  Receive Date: 20060216
  Receipt Date: 20060203
  Transmission Date: 20060701
  Serious: Yes (Hospitalization)
  Sender: FDA-Public Use
  Company Number: 2006018838

PATIENT
  Age: 46 Year
  Sex: Female
  Weight: 117.9352 kg

DRUGS (10)
  1. DIFLUCAN [Suspect]
     Indication: FUNGAL INFECTION
     Dosage: 1 IN 1 D
     Dates: start: 20040101
  2. TRILEPTAL [Suspect]
     Indication: BIPOLAR DISORDER
  3. METFORMIN HCL [Concomitant]
  4. NOVOLIN 70/30 [Concomitant]
  5. VENTOLIN [Concomitant]
  6. ATROVEN (IPRATROPIUM BROMIDE) [Concomitant]
  7. CELEXA [Concomitant]
  8. DLONAZEPAM (ZIPRASIDONE) [Concomitant]
  9. GEODON [Concomitant]
  10. LISINOPRIL [Concomitant]

REACTIONS (4)
  - DRUG INTERACTION [None]
  - FORMICATION [None]
  - HALLUCINATION, VISUAL [None]
  - SKIN EXFOLIATION [None]
